FAERS Safety Report 24305600 (Version 1)
Quarter: 2024Q3

REPORT INFORMATION
  Report Type: Spontaneous
  Country: US (occurrence: US)
  Receive Date: 20240911
  Receipt Date: 20240911
  Transmission Date: 20241017
  Serious: Yes (Hospitalization, Other)
  Sender: DR REDDYS
  Company Number: US-DRL-USA-SPO/USA/24/0013130

PATIENT
  Age: 6 Decade
  Sex: Male

DRUGS (14)
  1. LENALIDOMIDE [Suspect]
     Active Substance: LENALIDOMIDE
     Indication: Acute febrile neutrophilic dermatosis
  2. AZACITIDINE [Suspect]
     Active Substance: AZACITIDINE
     Indication: Myelodysplastic syndrome
     Dosage: 6 CYCLES
  3. DECITABINE [Suspect]
     Active Substance: DECITABINE
     Indication: Myelodysplastic syndrome
     Dosage: 6 CYCLES
  4. CYCLOSPORINE [Suspect]
     Active Substance: CYCLOSPORINE
     Indication: Acute febrile neutrophilic dermatosis
  5. COLCHICINE [Suspect]
     Active Substance: COLCHICINE
     Indication: Acute febrile neutrophilic dermatosis
  6. CEDAZURIDINE [Suspect]
     Active Substance: CEDAZURIDINE
     Indication: Myelodysplastic syndrome
     Dosage: 6 CYCLES
  7. HUMAN IMMUNOGLOBULIN G [Suspect]
     Active Substance: HUMAN IMMUNOGLOBULIN G
     Indication: Acute febrile neutrophilic dermatosis
  8. ANAKINRA [Suspect]
     Active Substance: ANAKINRA
     Indication: Acute febrile neutrophilic dermatosis
  9. SECUKINUMAB [Suspect]
     Active Substance: SECUKINUMAB
     Indication: Acute febrile neutrophilic dermatosis
  10. RITUXIMAB [Suspect]
     Active Substance: RITUXIMAB
     Indication: Acute febrile neutrophilic dermatosis
  11. PREDNISONE [Concomitant]
     Active Substance: PREDNISONE
     Indication: Acute febrile neutrophilic dermatosis
  12. THALIDOMIDE [Concomitant]
     Active Substance: THALIDOMIDE
     Indication: Acute febrile neutrophilic dermatosis
  13. SULFASALAZINE [Concomitant]
     Active Substance: SULFASALAZINE
     Indication: Acute febrile neutrophilic dermatosis
  14. METHYLPREDNISOLONE [Concomitant]
     Active Substance: METHYLPREDNISOLONE
     Indication: Acute febrile neutrophilic dermatosis
     Dosage: 60 MG IV

REACTIONS (3)
  - Condition aggravated [Unknown]
  - Drug ineffective for unapproved indication [Unknown]
  - Drug intolerance [Unknown]
